FAERS Safety Report 25038049 (Version 1)
Quarter: 2025Q1

REPORT INFORMATION
  Report Type: Spontaneous
  Country: US (occurrence: US)
  Receive Date: 20250304
  Receipt Date: 20250304
  Transmission Date: 20250408
  Serious: No
  Sender: BRACCO
  Company Number: US-BRACCO-2024US08185

PATIENT
  Sex: Male

DRUGS (1)
  1. POSLUMA [Suspect]
     Active Substance: FLOTUFOLASTAT F-18
     Indication: Positron emission tomogram
     Dates: start: 20241218, end: 20241218

REACTIONS (2)
  - Overdose [Unknown]
  - No adverse event [Unknown]

NARRATIVE: CASE EVENT DATE: 20241218
